FAERS Safety Report 7728771-7 (Version None)
Quarter: 2011Q3

REPORT INFORMATION
  Report Type: 
  Country: None (occurrence: None)
  Receive Date: 20110906
  Receipt Date: 20110823
  Transmission Date: 20111222
  Serious: Yes (Other)
  Sender: FDA-Public Use
  Company Number: ES-ELI_LILLY_AND_COMPANY-ES201108007095

PATIENT
  Sex: Female
  Weight: 50 kg

DRUGS (10)
  1. SURMENALIT [Concomitant]
     Indication: VITAMIN SUPPLEMENTATION
     Dosage: 200 MG, QD
     Route: 048
  2. PARACETAMOL A [Concomitant]
     Indication: PAIN
     Dosage: 1 G, TID
     Route: 048
  3. NOLOTIL [Concomitant]
     Indication: PAIN
     Dosage: 1 DF, TID
     Route: 048
  4. OMEPRAZOLE [Concomitant]
     Indication: ABDOMINAL DISCOMFORT
     Dosage: 20 MG, QD
     Route: 048
  5. AMLODIPINE [Concomitant]
     Indication: BLOOD PRESSURE
     Dosage: 5 MG, QD
     Route: 048
  6. FORTEO [Suspect]
     Indication: OSTEOPOROSIS
     Dosage: 20 UG, QD
     Route: 058
     Dates: start: 20110621
  7. SIMVASTATINA [Concomitant]
     Indication: BLOOD CHOLESTEROL
     Dosage: 20 MG, ONE EVERY TWO DAYS
     Route: 048
  8. DUPHALAC [Concomitant]
     Indication: CONSTIPATION
     Dosage: UNK, QD
     Route: 048
  9. SINTROM [Concomitant]
     Indication: ANTICOAGULANT THERAPY
     Dosage: 1 G, TID
     Route: 048
  10. LORMETAZEPAM [Concomitant]
     Indication: SLEEP DISORDER
     Dosage: 2 MG, QD
     Route: 048

REACTIONS (1)
  - DEEP VEIN THROMBOSIS [None]
